FAERS Safety Report 10264654 (Version 1)
Quarter: 2014Q2

REPORT INFORMATION
  Report Type: Spontaneous
  Country: FR (occurrence: FR)
  Receive Date: 20140627
  Receipt Date: 20140627
  Transmission Date: 20141212
  Serious: Yes (Hospitalization)
  Sender: FDA-Public Use
  Company Number: FR-ASTRAZENECA-2014SE45763

PATIENT
  Age: 82 Year
  Sex: Male

DRUGS (5)
  1. TENORMINE [Suspect]
     Indication: HYPERTENSION
     Route: 048
     Dates: start: 2008
  2. TENORMINE [Suspect]
     Indication: HYPERTENSION
     Route: 048
     Dates: end: 201402
  3. INNOHEP [Suspect]
     Indication: ATRIAL TACHYCARDIA
     Route: 058
     Dates: start: 201401
  4. TEMESTA [Suspect]
     Route: 048
     Dates: start: 20131217
  5. CORDARONE [Suspect]
     Indication: ATRIAL TACHYCARDIA
     Route: 048
     Dates: start: 201312, end: 201402

REACTIONS (4)
  - Malaise [Recovered/Resolved]
  - Loss of consciousness [Recovered/Resolved]
  - Renal failure [Unknown]
  - Bradycardia [Recovered/Resolved]
